FAERS Safety Report 12396359 (Version 2)
Quarter: 2016Q2

REPORT INFORMATION
  Report Type: Spontaneous
  Country: GB (occurrence: GB)
  Receive Date: 20160524
  Receipt Date: 20160614
  Transmission Date: 20160815
  Serious: Yes (Other)
  Sender: FDA-Public Use
  Company Number: GB-ROCHE-1761061

PATIENT
  Age: 31 Year
  Sex: Male

DRUGS (1)
  1. AVASTIN [Suspect]
     Active Substance: BEVACIZUMAB
     Indication: CORNEAL NEOVASCULARISATION
     Route: 061

REACTIONS (4)
  - Off label use [Unknown]
  - Corneal disorder [Unknown]
  - Corneal thinning [Unknown]
  - Corneal epithelium defect [Unknown]
